FAERS Safety Report 6163165-X (Version None)
Quarter: 2009Q2

REPORT INFORMATION
  Report Type: 
  Country: None (occurrence: None)
  Receive Date: 20090420
  Receipt Date: 20090420
  Transmission Date: 20091009
  Serious: No
  Sender: FDA-Public Use
  Company Number: None

PATIENT
  Age: 65 Year
  Sex: Female
  Weight: 77.6 kg

DRUGS (10)
  1. VARENICLINE [Suspect]
     Indication: SMOKING CESSATION THERAPY
     Dosage: 1 MG BID PO
     Route: 048
     Dates: start: 20071107, end: 20080205
  2. CALCIUM CARB [Concomitant]
  3. ERGOCALCIFEROL [Concomitant]
  4. FREESTYLE BLOOD GLUCOSE TEST STRIP [Concomitant]
  5. HYDROCHLOROTHIAZIDE [Concomitant]
  6. LISINOPRIL [Concomitant]
  7. METFORMIN HCL [Concomitant]
  8. METOPROLOL SUCCINATE [Concomitant]
  9. NICOTINE [Concomitant]
  10. ROSUVASTATIN CALCIUM [Concomitant]

REACTIONS (1)
  - ABNORMAL DREAMS [None]
